FAERS Safety Report 11928560 (Version 1)
Quarter: 2016Q1

REPORT INFORMATION
  Report Type: Spontaneous
  Country: US (occurrence: US)
  Receive Date: 20160119
  Receipt Date: 20160119
  Transmission Date: 20160526
  Serious: Yes (Other)
  Sender: FDA-Public Use
  Company Number: US-PFIZER INC-2016017909

PATIENT
  Age: 40 Year
  Sex: Male

DRUGS (3)
  1. NANDROLONE [Suspect]
     Active Substance: NANDROLONE
     Dosage: UNK
  2. TESTOSTERONE CIPIONATE [Suspect]
     Active Substance: TESTOSTERONE
     Dosage: UNK
  3. METHANDROSTENOLONE [Suspect]
     Active Substance: METHANDROSTENOLONE
     Dosage: UNK

REACTIONS (2)
  - Hyperbilirubinaemia [Recovering/Resolving]
  - Liver disorder [Unknown]
